FAERS Safety Report 23534321 (Version 1)
Quarter: 2024Q1

REPORT INFORMATION
  Report Type: Spontaneous
  Country: PT (occurrence: PT)
  Receive Date: 20240217
  Receipt Date: 20240217
  Transmission Date: 20240410
  Serious: Yes (Life-Threatening, Hospitalization, Other)
  Sender: FDA-Public Use
  Company Number: PT-LABALTER-202304200

PATIENT
  Age: 39 Year
  Sex: Female

DRUGS (1)
  1. AMOXICILLIN\CLAVULANIC ACID [Suspect]
     Active Substance: AMOXICILLIN\CLAVULANIC ACID
     Indication: Tonsillitis bacterial
     Dosage: UNK
     Route: 048

REACTIONS (5)
  - Septic shock [Recovering/Resolving]
  - Peritonsillar abscess [Recovering/Resolving]
  - Klebsiella infection [Recovering/Resolving]
  - Candida infection [Recovering/Resolving]
  - Drug ineffective [Unknown]
